FAERS Safety Report 10475574 (Version 1)
Quarter: 2014Q3

REPORT INFORMATION
  Report Type: Spontaneous
  Country: FR (occurrence: FR)
  Receive Date: 20140925
  Receipt Date: 20140925
  Transmission Date: 20150326
  Serious: Yes (Hospitalization)
  Sender: FDA-Public Use
  Company Number: FR-GE HEALTHCARE MEDICAL DIAGNOSTICS-OMPQ-PR-1409S-1170

PATIENT
  Age: 86 Year
  Sex: Female

DRUGS (18)
  1. OMNIPAQUE [Suspect]
     Active Substance: IOHEXOL
     Indication: DIAGNOSTIC PROCEDURE
  2. PREVISCAN [Concomitant]
     Active Substance: FLUINDIONE
  3. C3G [Concomitant]
  4. KARDEGIC [Concomitant]
     Active Substance: ASPIRIN LYSINE
  5. DIGOXINE [Concomitant]
     Active Substance: DIGOXIN
  6. LASILIX [Suspect]
     Active Substance: FUROSEMIDE
     Route: 048
     Dates: start: 201408, end: 20140820
  7. LOVENOX [Concomitant]
     Active Substance: ENOXAPARIN SODIUM
  8. TILDIEM [Concomitant]
     Active Substance: DILTIAZEM HYDROCHLORIDE
  9. SPIRIVA [Concomitant]
     Active Substance: TIOTROPIUM BROMIDE MONOHYDRATE
  10. BRICANYL [Concomitant]
     Active Substance: TERBUTALINE SULFATE
  11. APROVEL [Suspect]
     Active Substance: IRBESARTAN
     Route: 048
     Dates: start: 201408, end: 20140820
  12. OMNIPAQUE [Suspect]
     Active Substance: IOHEXOL
     Indication: HAEMATOMA
     Route: 042
     Dates: start: 20140820, end: 20140820
  13. SERETIDE [Concomitant]
     Active Substance: FLUTICASONE FUROATE\SALMETEROL XINAFOATE
  14. SEVIKAR [Concomitant]
     Active Substance: AMLODIPINE BESYLATE\OLMESARTAN MEDOXOMIL
  15. ATROVENT [Concomitant]
     Active Substance: IPRATROPIUM BROMIDE
  16. SOLU-MEDROL [Concomitant]
     Active Substance: METHYLPREDNISOLONE SODIUM SUCCINATE
  17. ANTIBIOTICS [Concomitant]
     Active Substance: UNSPECIFIED INGREDIENT
     Dates: end: 20140819
  18. AIROMIR [Concomitant]
     Active Substance: ALBUTEROL SULFATE

REACTIONS (2)
  - Renal failure [Recovered/Resolved]
  - Hyponatraemia [Recovered/Resolved]

NARRATIVE: CASE EVENT DATE: 201408
